FAERS Safety Report 8301203-6 (Version None)
Quarter: 2012Q2

REPORT INFORMATION
  Report Type: 
  Country: None (occurrence: None)
  Receive Date: 20120420
  Receipt Date: 20120420
  Transmission Date: 20120825
  Serious: Yes (Other)
  Sender: FDA-Public Use
  Company Number: None

PATIENT
  Age: 57 Year
  Sex: Female
  Weight: 55.338 kg

DRUGS (1)
  1. SCOPOLAMINE [Suspect]
     Indication: MOTION SICKNESS
     Dates: start: 20120409, end: 20120416

REACTIONS (8)
  - DIZZINESS POSTURAL [None]
  - LOSS OF CONSCIOUSNESS [None]
  - VOMITING [None]
  - NAUSEA [None]
  - BLOOD PRESSURE DECREASED [None]
  - RETCHING [None]
  - NO REACTION ON PREVIOUS EXPOSURE TO DRUG [None]
  - DRUG INEFFECTIVE [None]
